FAERS Safety Report 7690897-4 (Version None)
Quarter: 2011Q3

REPORT INFORMATION
  Report Type: 
  Country: None (occurrence: None)
  Receive Date: 20110818
  Receipt Date: 20110818
  Transmission Date: 20111222
  Serious: Yes (Other)
  Sender: FDA-Public Use
  Company Number: None

PATIENT
  Age: 39 Year
  Sex: Female
  Weight: 57.152 kg

DRUGS (1)
  1. ZYPREXA [Suspect]
     Indication: SCHIZOPHRENIA
     Dosage: 5MG
     Route: 048
     Dates: start: 20110201, end: 20110625

REACTIONS (3)
  - PRURITUS GENERALISED [None]
  - POLLAKIURIA [None]
  - HYPOAESTHESIA [None]
